FAERS Safety Report 21202700 (Version 1)
Quarter: 2022Q3

REPORT INFORMATION
  Report Type: Spontaneous
  Country: CN (occurrence: CN)
  Receive Date: 20220811
  Receipt Date: 20220811
  Transmission Date: 20221027
  Serious: Yes (Hospitalization)
  Sender: FDA-Public Use
  Company Number: None

PATIENT
  Age: 57 Year
  Sex: Male
  Weight: 65 kg

DRUGS (8)
  1. DEXTROSE [Suspect]
     Active Substance: DEXTROSE
     Indication: Colon cancer
     Dosage: 500 ML ONCE DAILY, INJECTION (DILUENT FOR OXALIPLATIN)
     Route: 041
     Dates: start: 20220709, end: 20220711
  2. SODIUM CHLORIDE [Suspect]
     Active Substance: SODIUM CHLORIDE
     Indication: Colon cancer
     Dosage: 500 ML ONCE DAILY, INJECTION (DILUENT FOR CETUXIMAB)
     Route: 041
     Dates: start: 20220709, end: 20220711
  3. SODIUM CHLORIDE [Suspect]
     Active Substance: SODIUM CHLORIDE
     Indication: Colon cancer
     Dosage: 230 ML, ONCE DAILY, ROUTE: INTRA-PUMP INJECTION (DILUENT FOR FLUOROURACIL 4.2G)
     Route: 042
     Dates: start: 20220709, end: 20220711
  4. SODIUM CHLORIDE [Suspect]
     Active Substance: SODIUM CHLORIDE
     Indication: Colon cancer
     Dosage: 30 ML, ONCE DAILY (DILUENT FOR FLUOROURACIL 0.7G)
     Route: 041
     Dates: start: 20220709, end: 20220711
  5. OXALIPLATIN [Suspect]
     Active Substance: OXALIPLATIN
     Indication: Colon cancer
     Dosage: 140 MG ONCE DAILY
     Route: 041
     Dates: start: 20220709, end: 20220711
  6. FLUOROURACIL [Suspect]
     Active Substance: FLUOROURACIL
     Indication: Colon cancer
     Dosage: 4.2 G ONCE DAILY, INTRA-PUMP INJECTION
     Route: 042
     Dates: start: 20220709, end: 20220711
  7. FLUOROURACIL [Suspect]
     Active Substance: FLUOROURACIL
     Dosage: 0.7 G ONCE DAILY
     Route: 041
     Dates: start: 20220709, end: 20220711
  8. ERBITUX [Suspect]
     Active Substance: CETUXIMAB
     Indication: Colon cancer
     Dosage: 870 MG ONCE DAILY
     Route: 041
     Dates: start: 20220709, end: 20220711

REACTIONS (2)
  - Rash [Recovering/Resolving]
  - Pustule [Recovering/Resolving]

NARRATIVE: CASE EVENT DATE: 20220726
